FAERS Safety Report 25836896 (Version 2)
Quarter: 2025Q3

REPORT INFORMATION
  Report Type: Spontaneous
  Country: AU (occurrence: AU)
  Receive Date: 20250923
  Receipt Date: 20250926
  Transmission Date: 20251021
  Serious: Yes (Other)
  Sender: PFIZER
  Company Number: AU-PFIZER INC-PV202500112799

PATIENT
  Age: 61 Year
  Sex: Male

DRUGS (1)
  1. ENCORAFENIB [Suspect]
     Active Substance: ENCORAFENIB
     Indication: Metastatic malignant melanoma
     Dosage: 300 MG, 1X/DAY
     Dates: start: 2013

REACTIONS (1)
  - Melanocytic naevus [Unknown]
